FAERS Safety Report 11983664 (Version 1)
Quarter: 2016Q1

REPORT INFORMATION
  Report Type: Spontaneous
  Country: US (occurrence: US)
  Receive Date: 20160201
  Receipt Date: 20160201
  Transmission Date: 20160526
  Serious: Yes (Hospitalization)
  Sender: FDA-Public Use
  Company Number: US-VERTEX PHARMACEUTICALS-2016-000487

PATIENT
  Age: 42 Year
  Sex: Male

DRUGS (14)
  1. POTASSIUM CHLORIDE. [Concomitant]
     Active Substance: POTASSIUM CHLORIDE
  2. PULMOZYME [Concomitant]
     Active Substance: DORNASE ALFA
  3. SULFAMETHOXAZOLE AND TRIMETHOPRIM [Concomitant]
     Active Substance: SULFAMETHOXAZOLE\TRIMETHOPRIM
  4. ZENPEP [Concomitant]
     Active Substance: PANCRELIPASE AMYLASE\PANCRELIPASE LIPASE\PANCRELIPASE PROTEASE
  5. ORKAMBI [Suspect]
     Active Substance: IVACAFTOR\LUMACAFTOR
     Indication: CYSTIC FIBROSIS
     Dosage: 400MG-250MG BID
     Route: 048
     Dates: start: 20151124
  6. PREVACID [Concomitant]
     Active Substance: LANSOPRAZOLE
  7. GOLYTELY [Concomitant]
     Active Substance: POLYETHYLENE GLYCOL 3350\POTASSIUM CHLORIDE\SODIUM BICARBONATE\SODIUM CHLORIDE\SODIUM SULFATE ANHYDROUS
  8. PREDNISONE. [Concomitant]
     Active Substance: PREDNISONE
  9. PROAIR HFA [Concomitant]
     Active Substance: ALBUTEROL SULFATE
  10. PANCREASE MT [Concomitant]
     Active Substance: PANCRELIPASE
  11. ALBUTEROL. [Concomitant]
     Active Substance: ALBUTEROL
  12. LEVAQUIN [Concomitant]
     Active Substance: LEVOFLOXACIN
  13. VIAGRA [Concomitant]
     Active Substance: SILDENAFIL CITRATE
  14. ZOLPIDEM [Concomitant]
     Active Substance: ZOLPIDEM\ZOLPIDEM TARTRATE

REACTIONS (1)
  - Cystic fibrosis [Recovering/Resolving]

NARRATIVE: CASE EVENT DATE: 20160111
